FAERS Safety Report 25793292 (Version 1)
Quarter: 2025Q3

REPORT INFORMATION
  Report Type: Spontaneous
  Country: US (occurrence: US)
  Receive Date: 20250911
  Receipt Date: 20250911
  Transmission Date: 20251021
  Serious: No
  Sender: MISSION PHARMACAL COMPANY
  Company Number: US-Mission Pharmacal Company-2184356

PATIENT
  Age: 34 Year
  Sex: Female

DRUGS (10)
  1. THIOLA EC [Suspect]
     Active Substance: TIOPRONIN
     Indication: Cystinuria
     Dates: start: 20140823
  2. SODIUM BICARBONATE [Concomitant]
     Active Substance: SODIUM BICARBONATE
  3. ATOMOXETINE [Concomitant]
     Active Substance: ATOMOXETINE
  4. AIMOVIG [Concomitant]
     Active Substance: ERENUMAB-AOOE
  5. SUMATRIPTAN [Concomitant]
     Active Substance: SUMATRIPTAN
  6. DAYVIGO [Concomitant]
     Active Substance: LEMBOREXANT
  7. ALPRAZOLAM [Concomitant]
     Active Substance: ALPRAZOLAM
  8. QUETIAPINE [Concomitant]
     Active Substance: QUETIAPINE
  9. VITAMIN D [Concomitant]
     Active Substance: VITAMIN D NOS
  10. PROMETHAZINE [Concomitant]
     Active Substance: PROMETHAZINE HYDROCHLORIDE

REACTIONS (2)
  - Drug ineffective [Unknown]
  - Back pain [Unknown]
